FAERS Safety Report 9506638 (Version 1)
Quarter: 2013Q3

REPORT INFORMATION
  Report Type: Spontaneous
  Country: US (occurrence: US)
  Receive Date: 20130908
  Receipt Date: 20130908
  Transmission Date: 20140515
  Serious: Yes (Death, Hospitalization)
  Sender: FDA-Public Use
  Company Number: US-MYLANLABS-2013S1019414

PATIENT
  Age: 54 Year
  Sex: Female

DRUGS (3)
  1. ARMODAFINIL [Suspect]
     Indication: FATIGUE
     Route: 065
  2. METHADONE [Suspect]
     Route: 065
  3. LEVOTHYROXINE SODIUM [Concomitant]
     Route: 065

REACTIONS (2)
  - Drug reaction with eosinophilia and systemic symptoms [Fatal]
  - Fatigue [Unknown]
